FAERS Safety Report 12296788 (Version 1)
Quarter: 2016Q2

REPORT INFORMATION
  Report Type: Spontaneous
  Country: US (occurrence: US)
  Receive Date: 20160422
  Receipt Date: 20160422
  Transmission Date: 20160815
  Serious: Yes (Other)
  Sender: FDA-Public Use
  Company Number: ADR-2015-00487

PATIENT
  Age: 50 Year
  Sex: Male

DRUGS (3)
  1. ORAL BACLOFEN [Suspect]
     Active Substance: BACLOFEN
     Route: 048
  2. BACLOFEN. [Suspect]
     Active Substance: BACLOFEN
     Route: 037
     Dates: start: 201506
  3. BACLOFEN. [Suspect]
     Active Substance: BACLOFEN
     Dosage: 108.06 MCG/DAY
     Route: 037

REACTIONS (4)
  - Muscle spasticity [Unknown]
  - Tremor [Unknown]
  - Urine analysis abnormal [Unknown]
  - Therapeutic response decreased [Unknown]
